FAERS Safety Report 12684223 (Version 1)
Quarter: 2016Q3

REPORT INFORMATION
  Report Type: Spontaneous
  Country: US (occurrence: US)
  Receive Date: 20160825
  Receipt Date: 20160825
  Transmission Date: 20161109
  Serious: No
  Sender: FDA-Public Use
  Company Number: US-ALLERGAN-1646075US

PATIENT
  Age: 76 Year
  Sex: Male

DRUGS (19)
  1. CRESTOR [Concomitant]
     Active Substance: ROSUVASTATIN CALCIUM
     Indication: BLOOD CHOLESTEROL INCREASED
     Dosage: 5 MG, QOD
     Route: 048
  2. DULOXETINE. [Concomitant]
     Active Substance: DULOXETINE
     Indication: DEPRESSION
     Dosage: 60 MG, QD
     Route: 048
  3. PULMICORT TURBUHALER [Concomitant]
     Active Substance: BUDESONIDE
     Indication: ASTHMA
     Dosage: 180 ?G, PRN
     Route: 055
  4. OXYMETAZOLINE [Concomitant]
     Active Substance: OXYMETAZOLINE
     Indication: NASAL CONGESTION
     Dosage: 1 SPRAY EACH NOSTRIL
     Route: 045
  5. OMEPRAZOLE. [Concomitant]
     Active Substance: OMEPRAZOLE
     Indication: GASTROOESOPHAGEAL REFLUX DISEASE
     Dosage: 20 MG, QD
     Route: 048
  6. LISINOPRIL. [Concomitant]
     Active Substance: LISINOPRIL
     Indication: HYPERTENSION
     Dosage: 10 MG, QD
     Route: 048
  7. ANDRODERM [Suspect]
     Active Substance: TESTOSTERONE
     Dosage: 2 MG, QD
     Route: 062
     Dates: start: 20151110
  8. PROAIR HFA [Concomitant]
     Active Substance: ALBUTEROL SULFATE
     Indication: ASTHMA
     Dosage: 90 ?G, PRN
     Route: 055
  9. ANDRODERM [Suspect]
     Active Substance: TESTOSTERONE
     Dosage: UNK
     Route: 062
     Dates: start: 20150930, end: 20151109
  10. MONTELUKAST [Concomitant]
     Active Substance: MONTELUKAST SODIUM
     Indication: ASTHMA
     Dosage: 10 MG, QD
     Route: 048
  11. OXYCONTIN [Concomitant]
     Active Substance: OXYCODONE HYDROCHLORIDE
     Indication: BACK PAIN
     Dosage: 10 MG, BID
     Route: 048
  12. ANDRODERM [Suspect]
     Active Substance: TESTOSTERONE
     Indication: BLOOD TESTOSTERONE DECREASED
     Dosage: UNK
     Route: 062
     Dates: start: 20160112, end: 201603
  13. DIAZEPAM. [Concomitant]
     Active Substance: DIAZEPAM
     Indication: FEELING OF RELAXATION
  14. MELOXICAM. [Concomitant]
     Active Substance: MELOXICAM
     Indication: ARTHRITIS
     Dosage: 7.5 MG, QD
     Route: 048
  15. DIAZEPAM. [Concomitant]
     Active Substance: DIAZEPAM
     Indication: ANXIETY
     Dosage: 1-2 TABS, QD
     Route: 048
  16. DONEPEZIL. [Concomitant]
     Active Substance: DONEPEZIL
     Indication: MEMORY IMPAIRMENT
     Dosage: 5 MG, QD
     Route: 048
  17. OXYCODONE AND ACETAMINOPHEN [Concomitant]
     Active Substance: ACETAMINOPHEN\OXYCODONE HYDROCHLORIDE
     Indication: BACK PAIN
     Dosage: 5 MG, QD
     Route: 048
  18. PRAZOSIN [Concomitant]
     Active Substance: PRAZOSIN
     Indication: HYPERTENSION
     Dosage: 2 MG, QD
     Route: 048
  19. PRAZOSIN [Concomitant]
     Active Substance: PRAZOSIN
     Indication: ANXIETY

REACTIONS (4)
  - Application site erythema [Unknown]
  - Inappropriate schedule of drug administration [Unknown]
  - Incorrect dose administered [Unknown]
  - Blood testosterone decreased [Recovering/Resolving]
